FAERS Safety Report 5270286-2 (Version None)
Quarter: 2007Q1

REPORT INFORMATION
  Report Type: 
  Country: None (occurrence: None)
  Receive Date: 20070320
  Receipt Date: 20070315
  Transmission Date: 20070707
  Serious: Yes (Death, Life-Threatening)
  Sender: FDA-Public Use
  Company Number: US-SANOFI-SYNTHELABO-F01200700301

PATIENT
  Sex: Female
  Weight: 55 kg

DRUGS (3)
  1. BEVACIZUMAB [Suspect]
     Route: 041
     Dates: start: 20061120, end: 20061120
  2. DOCETAXEL [Suspect]
     Route: 041
     Dates: start: 20061120, end: 20061120
  3. OXALIPLATIN [Suspect]
     Route: 041
     Dates: start: 20061120, end: 20061120

REACTIONS (2)
  - DEHYDRATION [None]
  - DISEASE PROGRESSION [None]
